FAERS Safety Report 4461686-9 (Version None)
Quarter: 2004Q3

REPORT INFORMATION
  Report Type: 
  Country: None (occurrence: None)
  Receive Date: 20040929
  Receipt Date: 20040916
  Transmission Date: 20050211
  Serious: Yes (Hospitalization)
  Sender: FDA-Public Use
  Company Number: 200419147GDDC

PATIENT
  Age: 82 Year
  Sex: Male

DRUGS (10)
  1. FLUDEX [Suspect]
     Dosage: DOSE: 1 DF
     Route: 048
  2. ASPEGIC 325 [Suspect]
     Route: 048
  3. TENORMIN [Suspect]
  4. TAHOR [Suspect]
  5. CORVASAL [Suspect]
  6. TRIATEC [Suspect]
     Route: 048
  7. ZYLORIC [Concomitant]
  8. CHIBRO-PROSCAR [Concomitant]
  9. FORLAX [Concomitant]
  10. MAXEPA                                  /UNK/ [Concomitant]

REACTIONS (1)
  - RECTAL HAEMORRHAGE [None]
